FAERS Safety Report 6180459-2 (Version None)
Quarter: 2009Q2

REPORT INFORMATION
  Report Type: 
  Country: None (occurrence: None)
  Receive Date: 20090506
  Receipt Date: 20090427
  Transmission Date: 20091009
  Serious: Yes (Hospitalization)
  Sender: FDA-Public Use
  Company Number: ES-ELI_LILLY_AND_COMPANY-ES200904006733

PATIENT
  Age: 86 Year
  Sex: Female

DRUGS (5)
  1. FORTEO [Suspect]
     Indication: OSTEOPOROSIS
     Dosage: 20 UG, UNK
     Route: 058
     Dates: start: 20081201
  2. CLEXANE [Concomitant]
     Dosage: UNK, UNK
  3. ORFIDAL [Concomitant]
  4. SERETIDE [Concomitant]
  5. VENTOLIN [Concomitant]

REACTIONS (2)
  - FALL [None]
  - HIP FRACTURE [None]
